FAERS Safety Report 8986075 (Version 2)
Quarter: 2013Q1

REPORT INFORMATION
  Report Type: Spontaneous
  Country: US (occurrence: None)
  Receive Date: 20121218
  Receipt Date: 20130124
  Transmission Date: 20140127
  Serious: Yes (Other)
  Sender: FDA-Public Use
  Company Number: USA/USA/12/0027067

PATIENT
  Age: 71 Year
  Sex: Female
  Weight: 81.65 kg

DRUGS (3)
  1. FAMOTIDINE [Suspect]
     Indication: GASTROOESOPHAGEAL REFLUX DISEASE
     Route: 048
     Dates: start: 20121205
  2. MULTIVITAMIN [Concomitant]
  3. LEVOTHYROXINE (LEVOTHYROXINE) [Concomitant]

REACTIONS (7)
  - Dry mouth [None]
  - Pollakiuria [None]
  - Depression [None]
  - Pharyngeal disorder [None]
  - Abdominal discomfort [None]
  - Contusion [None]
  - Muscle spasms [None]
